FAERS Safety Report 8434866-5 (Version None)
Quarter: 2012Q2

REPORT INFORMATION
  Report Type: 
  Country: None (occurrence: None)
  Receive Date: 20120614
  Receipt Date: 20120604
  Transmission Date: 20120825
  Serious: Yes (Hospitalization)
  Sender: FDA-Public Use
  Company Number: US-BAYER-2011-076569

PATIENT
  Age: 25 Year
  Sex: Female
  Weight: 58.957 kg

DRUGS (17)
  1. CRANBERRY [Concomitant]
     Dosage: UNK UNK, QD
  2. COMPAZINE [Concomitant]
     Dosage: 10 MG, UNK
     Route: 048
     Dates: start: 20090601
  3. LORTAB [Concomitant]
     Indication: PAIN
     Dosage: 5-500 MG
     Route: 048
     Dates: start: 20090608
  4. DROSPIRENONE AND ETHINYL ESTRADIOL [Suspect]
     Indication: ACNE
  5. DARVOCET-N 50 [Concomitant]
     Indication: PROCEDURAL PAIN
     Dosage: 50-325 MG TABLETS EVERY 4 HRS AS NEEDED
     Route: 048
     Dates: start: 20090603
  6. LAMICTAL [Concomitant]
     Indication: DEPRESSION
     Dosage: 100 MG TO 200 MG ONCE DAILY
     Route: 048
     Dates: start: 20090701, end: 20100201
  7. ZOLOFT [Concomitant]
     Indication: DEPRESSION
     Dosage: 25 MG DAILY TO 100 MG DAILY
     Route: 048
     Dates: start: 20090201
  8. SEROQUEL [Concomitant]
     Indication: DEPRESSION
     Dosage: UNK UNK, QD
     Route: 048
     Dates: start: 20090701
  9. SEROQUEL [Concomitant]
     Dosage: 100 MG TO 300 MG ONCE DAILY
     Route: 048
     Dates: start: 20090701
  10. DROSPIRENONE AND ETHINYL ESTRADIOL [Suspect]
     Indication: CONTRACEPTION
     Dosage: UNK
     Route: 048
     Dates: start: 20090703, end: 20090821
  11. VISTARIL [Concomitant]
     Dosage: 25 MG, ONE OR TWO AT BEDTIME
     Route: 048
     Dates: start: 20090602
  12. LITHIUM CARBONATE [Concomitant]
     Indication: BIPOLAR DISORDER
     Dosage: 150 MG TO 300 MG TWICE DAILY
     Route: 048
     Dates: start: 20090603, end: 20090702
  13. YASMIN [Suspect]
  14. ANTIDEPRESSANTS [Concomitant]
     Indication: DEPRESSION
     Dosage: UNK
     Dates: start: 20090101
  15. VITAMIN B NOS [Concomitant]
     Dosage: 5.5 MG-12.5 MCG ONE EACH WEEK
  16. FLEXERIL [Concomitant]
     Indication: MUSCLE SPASMS
     Dosage: 10 MG, TID AS NEEDED
     Route: 048
     Dates: start: 20090212
  17. KLONOPIN [Concomitant]
     Indication: DEPRESSION
     Dosage: 0.5 MG, QD
     Dates: start: 20090801, end: 20100101

REACTIONS (8)
  - INJURY [None]
  - EMOTIONAL DISTRESS [None]
  - PAIN IN EXTREMITY [None]
  - FEAR OF PREGNANCY [None]
  - ANXIETY [None]
  - FEAR [None]
  - DEEP VEIN THROMBOSIS [None]
  - PAIN [None]
